FAERS Safety Report 5837482-4 (Version None)
Quarter: 2008Q3

REPORT INFORMATION
  Report Type: 
  Country: None (occurrence: None)
  Receive Date: 20080807
  Receipt Date: 20080731
  Transmission Date: 20090109
  Serious: Yes (Hospitalization)
  Sender: FDA-Public Use
  Company Number: AU-BOEHRINGER INGELHEIM GMBH, GERMANY-2008-BP-12101AU

PATIENT
  Age: 54 Year
  Sex: Female

DRUGS (2)
  1. MOBIC [Suspect]
     Indication: ARTHRITIS
     Route: 048
     Dates: end: 20070815
  2. FOSAMAX [Suspect]
     Indication: OSTEOPOROSIS
     Route: 048
     Dates: end: 20071015

REACTIONS (4)
  - CHOKING [None]
  - GASTRITIS [None]
  - HIATUS HERNIA [None]
  - VOMITING [None]
